FAERS Safety Report 10666310 (Version 2)
Quarter: 2015Q1

REPORT INFORMATION
  Report Type: Spontaneous
  Country: IT (occurrence: IT)
  Receive Date: 20141220
  Receipt Date: 20150129
  Transmission Date: 20150720
  Serious: Yes (Other)
  Sender: FDA-Public Use
  Company Number: IT-009507513-1412ITA009487

PATIENT
  Age: 40 Year
  Sex: Female

DRUGS (1)
  1. PEGINTRON [Suspect]
     Active Substance: PEGINTERFERON ALFA-2B
     Indication: MONOCYTOSIS
     Dosage: UNK
     Route: 042
     Dates: start: 2013

REACTIONS (2)
  - Abdominal pain upper [Recovering/Resolving]
  - Gastrooesophageal reflux disease [Recovering/Resolving]

NARRATIVE: CASE EVENT DATE: 20141027
